FAERS Safety Report 8165209-2 (Version None)
Quarter: 2012Q1

REPORT INFORMATION
  Report Type: 
  Country: None (occurrence: None)
  Receive Date: 20120227
  Receipt Date: 20120221
  Transmission Date: 20120608
  Serious: No
  Sender: FDA-Public Use
  Company Number: US-PFIZER INC-2012023486

PATIENT
  Sex: Female
  Weight: 73.5 kg

DRUGS (28)
  1. COREG [Concomitant]
     Dosage: 12.5 MG, 1 TABLET 2 TIMES DAILY WITH MEALS
     Route: 048
     Dates: start: 20111019
  2. ELIMITE [Concomitant]
     Dosage: APPLY 1 DOSE. APPLY HEAD TO TOE BEFORE BED TIME, SPARINGLY, LEAVE ON 12-14 HOURS, RINSE EVRY 2 WEEK
     Dates: start: 20120119
  3. CLONAZEPAM [Interacting]
     Indication: SLEEP DISORDER
     Dosage: 1 MG, 3 TABLETS AT BED TIME
     Route: 048
     Dates: start: 20111020
  4. CYANOCOBALAMIN [Concomitant]
     Dosage: 1000 MCG/ML 1ML EVERY 14 DAYS
     Route: 030
     Dates: start: 20111223
  5. KETOROLAC [Concomitant]
     Indication: MIGRAINE
     Dosage: 10 MG, 1 TABLET TWICE DAILY
     Dates: start: 20111019
  6. HYDROCORTISONE [Concomitant]
     Dosage: 2.5 %, TWICE DAILY
     Dates: start: 20110831
  7. TIZANIDINE [Concomitant]
     Indication: MUSCLE SPASMS
     Dosage: 4 MG, ONE Q 6-8 HOURS PRN
     Dates: start: 20120106
  8. ANTIPYRINE W/BENZOCAINE [Concomitant]
     Dosage: INSTILL 2 DROPS INTO EACH EAR 4 TIMES DAILY AS NEEDED
     Dates: start: 20120120
  9. BUTALBITAL AND CAFFEINE AND PARACETAMOL [Concomitant]
     Indication: MIGRAINE
     Dosage: 50-325-40 MG 1 OR 2 TABLETS EVERY 4 HOURS AS NEEDED
     Dates: start: 20111223
  10. POLYETHYLENE GLYCOL [Concomitant]
     Dosage: 17 GM IN FLUID AS DIRECTED
     Dates: start: 20100728
  11. SIMVASTATIN [Concomitant]
     Dosage: 40 MG,1 TABLET NIGHTLY
     Route: 048
     Dates: start: 20111019
  12. CELEBREX [Interacting]
     Dosage: 200 MG, 1 TABLET DAILY
     Route: 048
     Dates: start: 20111223
  13. ALPRAZOLAM [Concomitant]
     Dosage: 0.25MG,  3 TIMES DAILY AS NEEDED
     Route: 048
     Dates: start: 20101208
  14. CAPSICUM [Concomitant]
     Dosage: 0.075%3 TIMES DAILY
     Route: 061
     Dates: start: 20120104
  15. FLEXERIL [Concomitant]
     Indication: MUSCLE SPASMS
     Dosage: 10 MG, 1 TABLET 3 TIMES DAILY AS NEEDED 1-2 TID PRN
     Route: 048
     Dates: start: 20111031
  16. LISINOPRIL [Concomitant]
     Dosage: 10 MG, 1 TABLET DAILY
     Route: 048
  17. ZOFRAN [Concomitant]
     Dosage: HALF TAB Q 8 HRS PRN
     Dates: start: 20110615
  18. PERCOCET [Interacting]
     Dosage: 1 OR 2 TABLETS 5 TIMES DAILY AS NEEDED
     Dates: start: 20120120
  19. MONISTAT [Concomitant]
     Dosage: 1200-2-MG-% ONCE
     Route: 067
     Dates: start: 20110517
  20. PRILOSEC [Concomitant]
     Dosage: 20 MG,1 CAPSULE DAILY
     Route: 048
     Dates: start: 20111223
  21. OXYCONTIN [Concomitant]
     Dosage: 20 MG, 2X/DAY X 10 DAYS
     Dates: start: 20111229
  22. LYRICA [Suspect]
     Indication: PAIN
     Dosage: 75 MG, 2X/DAY
     Route: 048
     Dates: start: 20120124, end: 20120126
  23. GUAIFENESIN [Concomitant]
     Dosage: 400 MG, 4 TIMES DAILY
     Route: 048
     Dates: start: 20110302
  24. LEVOTHYROXINE [Concomitant]
     Dosage: 50 UG, 1 TABLET DAILY
     Route: 048
     Dates: start: 20110614
  25. PAROXETINE [Concomitant]
     Dosage: 40 MG, 1 TABLET EVERY MORNING
     Route: 048
     Dates: start: 20111223
  26. TRIAMCINOLONE [Concomitant]
     Dosage: 0.1 %, 2 TIMES DAILY
     Route: 061
     Dates: start: 20110829
  27. LIBRAX [Concomitant]
     Dosage: 2.5-5 MG 1 CAPSULE 4 TIMES DAILY
     Route: 048
     Dates: start: 20111223
  28. TERAZOL 3 [Concomitant]
     Dosage: 0.8 %, INSERT ONE APPLICATOR FULL AT NIGHT UNTIL GONE
     Route: 067
     Dates: start: 20110922

REACTIONS (6)
  - MALAISE [None]
  - URINARY INCONTINENCE [None]
  - POLLAKIURIA [None]
  - DISCOMFORT [None]
  - DRUG INTERACTION [None]
  - FEELING ABNORMAL [None]
